FAERS Safety Report 9163736 (Version 1)
Quarter: 2013Q1

REPORT INFORMATION
  Report Type: Spontaneous
  Country: GB (occurrence: GB)
  Receive Date: 20130314
  Receipt Date: 20130314
  Transmission Date: 20140127
  Serious: Yes (Disabling, Other)
  Sender: FDA-Public Use
  Company Number: GB-PFIZER INC-2013083019

PATIENT
  Age: 34 Year
  Sex: Female
  Weight: 59.41 kg

DRUGS (1)
  1. LYRICA [Suspect]
     Indication: MYOFASCIAL PAIN SYNDROME

REACTIONS (10)
  - Drug dependence [Unknown]
  - Withdrawal syndrome [Unknown]
  - Emotional poverty [Recovered/Resolved]
  - Diarrhoea [Recovered/Resolved]
  - Dizziness [Recovered/Resolved]
  - Neuralgia [Recovered/Resolved]
  - Drug withdrawal headache [Recovered/Resolved]
  - Anxiety [Recovered/Resolved]
  - Paranoia [Recovered/Resolved]
  - Off label use [Recovered/Resolved]
